FAERS Safety Report 8047808-1 (Version None)
Quarter: 2012Q1

REPORT INFORMATION
  Report Type: 
  Country: None (occurrence: None)
  Receive Date: 20120116
  Receipt Date: 20120112
  Transmission Date: 20120608
  Serious: Yes (Death, Hospitalization)
  Sender: FDA-Public Use
  Company Number: PHFR2012GB000442

PATIENT
  Sex: Male

DRUGS (1)
  1. CLOZARIL [Suspect]
     Indication: SCHIZOPHRENIA
     Route: 048
     Dates: start: 19990112

REACTIONS (4)
  - BRONCHOPNEUMONIA [None]
  - VOMITING [None]
  - GASTROINTESTINAL ULCER PERFORATION [None]
  - OESOPHAGEAL RUPTURE [None]
